FAERS Safety Report 25522073 (Version 1)
Quarter: 2025Q3

REPORT INFORMATION
  Report Type: Report from Study
  Country: US (occurrence: US)
  Receive Date: 20250707
  Receipt Date: 20250707
  Transmission Date: 20251021
  Serious: Yes (Other)
  Sender: TAKEDA
  Company Number: US-TAKEDA-2022TUS098930

PATIENT
  Sex: Female

DRUGS (6)
  1. DEXLANSOPRAZOLE [Suspect]
     Active Substance: DEXLANSOPRAZOLE
     Indication: Product used for unknown indication
  2. METOPROLOL [Concomitant]
     Active Substance: METOPROLOL
  3. LASIX [Concomitant]
     Active Substance: FUROSEMIDE
  4. MAGNESIUM [Concomitant]
     Active Substance: MAGNESIUM
  5. ESTRADIOL [Concomitant]
     Active Substance: ESTRADIOL
  6. BACLOFEN [Concomitant]
     Active Substance: BACLOFEN

REACTIONS (7)
  - Neoplasm malignant [Unknown]
  - Product use issue [Unknown]
  - Weight decreased [Unknown]
  - Weight fluctuation [Unknown]
  - Eating disorder [Unknown]
  - Gastrointestinal disorder [Unknown]
  - Vomiting [Unknown]
